FAERS Safety Report 5669209-3 (Version None)
Quarter: 2008Q1

REPORT INFORMATION
  Report Type: 
  Country: None (occurrence: None)
  Receive Date: 20080317
  Receipt Date: 20080307
  Transmission Date: 20080703
  Serious: Yes (Hospitalization)
  Sender: FDA-Public Use
  Company Number: PHBS2007BR18967

PATIENT
  Sex: Male
  Weight: 100 kg

DRUGS (2)
  1. GLEEVEC [Suspect]
     Indication: CHRONIC MYELOID LEUKAEMIA
     Dosage: 400 MG/D
     Route: 048
     Dates: start: 20040101
  2. GLEEVEC [Suspect]
     Dosage: 600 MG/DAY

REACTIONS (10)
  - ACUTE MYELOID LEUKAEMIA [None]
  - ANAEMIA [None]
  - ASTHENIA [None]
  - CHROMOSOME ANALYSIS ABNORMAL [None]
  - CONVULSION [None]
  - HEADACHE [None]
  - PLATELET COUNT DECREASED [None]
  - POOR QUALITY DRUG ADMINISTERED [None]
  - THERAPEUTIC PROCEDURE [None]
  - WHITE BLOOD CELL COUNT INCREASED [None]
